FAERS Safety Report 11999471 (Version 1)
Quarter: 2016Q1

REPORT INFORMATION
  Report Type: Spontaneous
  Country: US (occurrence: None)
  Receive Date: 20160203
  Receipt Date: 20160203
  Transmission Date: 20160526
  Serious: Yes (Hospitalization, Disabling, Other)
  Sender: FDA-Public Use
  Company Number: None

PATIENT
  Age: 51 Year
  Sex: Female

DRUGS (1)
  1. PRILOSEC [Suspect]
     Active Substance: OMEPRAZOLE MAGNESIUM
     Indication: DYSPEPSIA
     Route: 048
     Dates: start: 20141116, end: 20151117

REACTIONS (5)
  - Intestinal metaplasia [None]
  - Chest pain [None]
  - Chronic gastritis [None]
  - Dehydration [None]
  - Pyrexia [None]

NARRATIVE: CASE EVENT DATE: 20151014
